FAERS Safety Report 13934992 (Version 3)
Quarter: 2020Q1

REPORT INFORMATION
  Report Type: Other
  Country: DE (occurrence: DE)
  Receive Date: 20170905
  Receipt Date: 20200320
  Transmission Date: 20200409
  Serious: Yes (Congenital Anomaly, Other)
  Sender: FDA-Public Use
  Company Number: DE-LUPIN PHARMACEUTICALS INC.-2016-05897

PATIENT
  Sex: Male
  Weight: 3.97 kg

DRUGS (12)
  1. SERTRALINE [Suspect]
     Active Substance: SERTRALINE HYDROCHLORIDE
     Indication: DEPRESSION
     Dosage: 50 MG, QD (0. - 40.3. GESTATIONAL WEEK)
     Route: 064
     Dates: start: 20160414, end: 20170122
  2. EFEROX [Concomitant]
     Active Substance: LEVOTHYROXINE SODIUM
     Indication: HYPOTHYROIDISM
     Dosage: 112 ???G, QD (0. - 40.3. GESTATIONAL WEEK)
     Route: 064
     Dates: start: 20160414, end: 20170122
  3. BALDRIAN-DISPERT [Concomitant]
     Active Substance: VALERIAN
     Indication: SLEEP DISORDER
     Dosage: 45 MG, QD (0. - 12. GESTATIONAL WEEK)
     Route: 064
  4. NYSTATIN. [Concomitant]
     Active Substance: NYSTATIN
     Indication: VULVOVAGINAL MYCOTIC INFECTION
     Dosage: UNK (4. - 6. GESTATIONAL WEEK)
     Route: 064
  5. WICK INHALIERSTIFT N [Concomitant]
     Indication: NASOPHARYNGITIS
     Dosage: UNK (8. - 8. GESTATIONAL WEEK)
     Route: 064
     Dates: start: 20160609, end: 20160609
  6. OXYTOCIN. [Concomitant]
     Active Substance: OXYTOCIN
     Indication: LABOUR INDUCTION
     Dosage: 40.3. - 40.3. GESTATIONAL WEEK
     Route: 064
     Dates: start: 20170122, end: 20170122
  7. LEVETIRACETAM. [Suspect]
     Active Substance: LEVETIRACETAM
     Indication: EPILEPSY
     Dosage: 500 MG, BID (0. - 40.3. GESTATIONAL WEEK)
     Route: 064
     Dates: start: 20160414, end: 20170122
  8. VITAMIN D NOS [Concomitant]
     Active Substance: VITAMIN D NOS
     Indication: VITAMIN D DEFICIENCY
     Dosage: 1000 IU, QD (8. - 40. GESTATIONAL WEEK)
     Route: 064
  9. FEMIBION SCHWANGERSCHAFT 1 [Concomitant]
     Indication: PROPHYLAXIS OF NEURAL TUBE DEFECT
     Dosage: 0.4 MG, BID (0. - 11.6. GESTATIONAL WEEK)
     Route: 064
     Dates: start: 20160414, end: 20160706
  10. FOLIC ACID. [Concomitant]
     Active Substance: FOLIC ACID
     Indication: PROPHYLAXIS OF NEURAL TUBE DEFECT
     Dosage: 0.8 MILLIGRAM, QD
     Route: 064
     Dates: start: 20160414, end: 20160706
  11. INIMUR MYKO [Concomitant]
     Indication: VULVOVAGINAL MYCOTIC INFECTION
     Dosage: UNK (2.2. - 2.5. GESTATIONAL WEEK)
     Route: 064
  12. BEPANTHEN                          /00178901/ [Concomitant]
     Active Substance: DEXPANTHENOL
     Indication: NASAL DISCOMFORT
     Dosage: UNK (0. - 11.6. GESTATIONAL WEEK)
     Route: 064

REACTIONS (2)
  - Cerebral haemorrhage neonatal [Unknown]
  - Foetal exposure during pregnancy [Unknown]

NARRATIVE: CASE EVENT DATE: 201604
